FAERS Safety Report 8610736-4 (Version None)
Quarter: 2012Q3

REPORT INFORMATION
  Report Type: 
  Country: None (occurrence: None)
  Receive Date: 20120822
  Receipt Date: 20120814
  Transmission Date: 20120928
  Serious: Yes (Hospitalization)
  Sender: FDA-Public Use
  Company Number: US-UCBSA-058932

PATIENT
  Age: 69 Year
  Sex: Male
  Weight: 70.45 kg

DRUGS (31)
  1. CIMZIA [Suspect]
     Dates: start: 20110628, end: 20111005
  2. METHOTREXATE [Concomitant]
     Indication: CROHN'S DISEASE
     Dosage: 12.5 MG
     Dates: start: 20110401, end: 20120501
  3. NEOSPORIN [Concomitant]
     Dosage: 1 APPLICATION
  4. LASIX [Concomitant]
     Dosage: 40 MG
  5. AMBIEN [Concomitant]
     Dosage: 10 MG
  6. LOMOTIL [Concomitant]
  7. ZYRTEC [Concomitant]
  8. BENADRYL [Concomitant]
  9. BONIVA [Concomitant]
  10. PREDNISONE TAB [Concomitant]
     Indication: CROHN'S DISEASE
     Dosage: 2 MG
     Dates: start: 19670101
  11. TYGACIL [Concomitant]
     Dosage: 50 MG IVPB
     Route: 042
  12. CEFEPIME [Concomitant]
     Dosage: 1 G/D5W
     Route: 042
  13. FOLIC ACID [Concomitant]
     Indication: CROHN'S DISEASE
  14. FLAGYL [Concomitant]
     Dosage: 250 MG
  15. CANASA [Concomitant]
     Dosage: 1000 MG
  16. XIFAXAN [Concomitant]
     Indication: CROHN'S DISEASE
     Dosage: 400 MG
     Dates: start: 20120501
  17. LUNESTA [Concomitant]
  18. VENTOLIN [Concomitant]
  19. CIMZIA [Suspect]
     Indication: CROHN'S DISEASE
     Dates: start: 20111018, end: 20120101
  20. LEVOTHYROXINE SODIUM [Concomitant]
     Dosage: 0.075 MG
  21. ULTRAM [Concomitant]
     Dosage: 50 MG
  22. PEPCID [Concomitant]
     Dosage: 20 MG
  23. FLAGYL [Concomitant]
     Indication: CROHN'S DISEASE
     Dates: start: 19880101, end: 19960101
  24. VITAMIN B-12 [Concomitant]
  25. HEPARIN [Concomitant]
     Dosage: DRIP PREMIX:250 ML TITRATE
     Route: 041
  26. CATAPRES [Concomitant]
     Dosage: PATCH
  27. TYLENOL [Concomitant]
     Dosage: 650 MG
  28. LYRICA [Concomitant]
     Dosage: 75 MG
  29. MIRALAX [Concomitant]
     Dosage: 17 G
  30. FLOMAX [Concomitant]
     Dosage: 0.4 MG
  31. ULORIC [Concomitant]

REACTIONS (2)
  - DEEP VEIN THROMBOSIS [None]
  - CELLULITIS [None]
